FAERS Safety Report 5360271-4 (Version None)
Quarter: 2007Q2

REPORT INFORMATION
  Report Type: 
  Country: None (occurrence: None)
  Receive Date: 20070618
  Receipt Date: 20070611
  Transmission Date: 20071010
  Serious: Yes (Life-Threatening, Hospitalization, Other)
  Sender: FDA-Public Use
  Company Number: GR-NOVOPROD-264499

PATIENT
  Sex: Male
  Weight: 1.35 kg

DRUGS (3)
  1. NOVOLOG MIX 70/30 [Suspect]
     Route: 064
  2. CLEXANE [Concomitant]
     Route: 064
  3. PROGESTERONE [Concomitant]
     Route: 064

REACTIONS (1)
  - NEONATAL RESPIRATORY DISTRESS SYNDROME [None]
